FAERS Safety Report 26087384 (Version 1)
Quarter: 2025Q4

REPORT INFORMATION
  Report Type: Spontaneous
  Country: MA (occurrence: MA)
  Receive Date: 20251125
  Receipt Date: 20251125
  Transmission Date: 20260117
  Serious: Yes (Hospitalization)
  Sender: MYLAN
  Company Number: MA-MYLANLABS-2025M1099994

PATIENT
  Age: 70 Year
  Sex: Female

DRUGS (4)
  1. VALPROATE [Suspect]
     Active Substance: VALPROIC ACID
     Indication: Epilepsy
     Dosage: 500 MILLIGRAM, QD
  2. VALPROATE [Suspect]
     Active Substance: VALPROIC ACID
     Dosage: 500 MILLIGRAM, QD
     Route: 065
  3. VALPROATE [Suspect]
     Active Substance: VALPROIC ACID
     Dosage: 500 MILLIGRAM, QD
     Route: 065
  4. VALPROATE [Suspect]
     Active Substance: VALPROIC ACID
     Dosage: 500 MILLIGRAM, QD

REACTIONS (1)
  - Pemphigus [Recovering/Resolving]
